FAERS Safety Report 18943471 (Version 1)
Quarter: 2021Q1

REPORT INFORMATION
  Report Type: Other
  Country: PL (occurrence: PL)
  Receive Date: 20210226
  Receipt Date: 20210226
  Transmission Date: 20210420
  Serious: Yes (Other)
  Sender: FDA-Public Use
  Company Number: PL-CELLTRION INC.-2021PL002288

PATIENT

DRUGS (4)
  1. TORSEMED [Concomitant]
     Active Substance: TORSEMIDE
     Dosage: 10 MG
     Dates: start: 20200904
  2. SORTIS [Concomitant]
     Active Substance: ATORVASTATIN
     Dosage: 10 MG (ONGOING)
     Dates: start: 20190601
  3. RITUXIMAB (UNKNOWN) [Suspect]
     Active Substance: RITUXIMAB
     Indication: PRODUCT USED FOR UNKNOWN INDICATION
     Dosage: UNK
     Route: 065
     Dates: start: 20180125, end: 20200624
  4. AXTIL [Concomitant]
     Active Substance: RAMIPRIL
     Dosage: 2.5 MG (ONGOING)
     Dates: start: 20190601

REACTIONS (2)
  - Chronic kidney disease [Not Recovered/Not Resolved]
  - Cardiac failure chronic [Not Recovered/Not Resolved]

NARRATIVE: CASE EVENT DATE: 20190601
